FAERS Safety Report 8854785 (Version 2)
Quarter: 2013Q1

REPORT INFORMATION
  Report Type: Spontaneous
  Country: US (occurrence: US)
  Receive Date: 20121023
  Receipt Date: 20130305
  Transmission Date: 20140127
  Serious: Yes (Hospitalization)
  Sender: FDA-Public Use
  Company Number: US-BRISTOL-MYERS SQUIBB COMPANY-17038696

PATIENT
  Age: 43 Year
  Sex: Male

DRUGS (6)
  1. ABILIFY [Suspect]
     Indication: DEPRESSION
     Dosage: 14MAY12-2MG?21MAY12-4MG?30MAY12-10MG?18JUN12-20MG
     Route: 048
     Dates: start: 20120514, end: 20121011
  2. SEROQUEL [Suspect]
  3. ZOLOFT [Concomitant]
  4. VALIUM [Concomitant]
  5. CLONAZEPAM [Concomitant]
  6. SENSAVAL [Concomitant]

REACTIONS (1)
  - Pulmonary embolism [Unknown]
